FAERS Safety Report 9311951 (Version 2)
Quarter: 2013Q2

REPORT INFORMATION
  Report Type: Spontaneous
  Country: AT (occurrence: None)
  Receive Date: 20121226
  Receipt Date: 20130403
  Transmission Date: 20140414
  Serious: Yes (Life-Threatening, Hospitalization)
  Sender: FDA-Public Use
  Company Number: 2012DEPAT00139

PATIENT
  Age: 63 Year
  Sex: Female
  Weight: 68 kg

DRUGS (3)
  1. DEPOCYTE [Suspect]
     Indication: METASTASES TO MENINGES
     Route: 037
     Dates: start: 20120503, end: 20120503
  2. ABRAXANE (PACLITAXEL ALBUMIN) [Concomitant]
  3. DENOSUMAB (DENOSUMAB) [Concomitant]

REACTIONS (5)
  - General physical health deterioration [None]
  - Hypokalaemia [None]
  - Asthenia [None]
  - Metastases to meninges [None]
  - Condition aggravated [None]
